FAERS Safety Report 25206462 (Version 1)
Quarter: 2025Q2

REPORT INFORMATION
  Report Type: Report from Study
  Country: GB (occurrence: GB)
  Receive Date: 20250417
  Receipt Date: 20250417
  Transmission Date: 20250717
  Serious: Yes (Death, Other)
  Sender: JOHNSON AND JOHNSON
  Company Number: GB-JNJFOC-20250420651

PATIENT
  Age: 8 Decade
  Sex: Female

DRUGS (1)
  1. TREMFYA [Suspect]
     Active Substance: GUSELKUMAB
     Indication: Psoriasis
     Route: 058
     Dates: start: 20241113

REACTIONS (4)
  - Death [Fatal]
  - Pneumonia [Unknown]
  - Lymphoma [Unknown]
  - Brain neoplasm [Unknown]
